FAERS Safety Report 4874281-4 (Version None)
Quarter: 2006Q1

REPORT INFORMATION
  Report Type: 
  Country: None (occurrence: None)
  Receive Date: 20060106
  Receipt Date: 20051005
  Transmission Date: 20060701
  Serious: Yes (Hospitalization, Disabling)
  Sender: FDA-Public Use
  Company Number: US-MERCK-0510USA04198

PATIENT
  Age: 41 Year
  Sex: Female
  Weight: 82 kg

DRUGS (1)
  1. VIOXX [Suspect]
     Indication: PAIN
     Route: 048

REACTIONS (11)
  - ANEURYSM [None]
  - ARTHROPATHY [None]
  - CEREBRAL CYST [None]
  - CEREBROVASCULAR ACCIDENT [None]
  - CYST [None]
  - DEPRESSION [None]
  - HEAD INJURY [None]
  - HEADACHE [None]
  - HYPERTENSION [None]
  - INJURY [None]
  - PRESCRIBED OVERDOSE [None]
